FAERS Safety Report 12250453 (Version 2)
Quarter: 2016Q2

REPORT INFORMATION
  Report Type: Report from Study
  Country: BR (occurrence: BR)
  Receive Date: 20160408
  Receipt Date: 20160602
  Transmission Date: 20160815
  Serious: Yes (Life-Threatening, Hospitalization, Other)
  Sender: FDA-Public Use
  Company Number: PHHY2016BR045917

PATIENT
  Sex: Female
  Weight: 47 kg

DRUGS (1)
  1. TEGRETOL [Suspect]
     Active Substance: CARBAMAZEPINE
     Indication: EPILEPSY
     Dosage: 2 DF, QD
     Route: 048
     Dates: start: 1982

REACTIONS (9)
  - Infection [Recovering/Resolving]
  - Maternal exposure during pregnancy [Unknown]
  - Weight decreased [Unknown]
  - Epilepsy [Unknown]
  - Seizure [Unknown]
  - Endometriosis [Recovering/Resolving]
  - Feeling abnormal [Unknown]
  - Uterine adhesions [Unknown]
  - Anaemia [Unknown]
